FAERS Safety Report 20839745 (Version 1)
Quarter: 2022Q2

REPORT INFORMATION
  Report Type: Spontaneous
  Country: US (occurrence: None)
  Receive Date: 20220516
  Receipt Date: 20220516
  Transmission Date: 20220721
  Serious: Yes (Hospitalization)
  Sender: FDA-Public Use
  Company Number: None

PATIENT
  Age: 86 Year
  Sex: Male
  Weight: 77.07 kg

DRUGS (17)
  1. ABIRATERONE [Suspect]
     Active Substance: ABIRATERONE
     Indication: Prostate cancer
     Dosage: FREQUENCY : DAILY;?
     Route: 048
  2. PREDNISONE [Suspect]
     Active Substance: PREDNISONE
     Indication: Prostate cancer
     Dosage: FREQUENCY : TWICE A DAY;?
     Route: 048
  3. AMLODIPINE BESYLATE [Concomitant]
     Active Substance: AMLODIPINE BESYLATE
  4. CALCIUM CARBONATE [Concomitant]
  5. FLUOROURACIL [Concomitant]
     Active Substance: FLUOROURACIL
  6. GLIPIZIDE [Concomitant]
     Active Substance: GLIPIZIDE
  7. HYDROCHLOROTHIAZIDE [Concomitant]
  8. JANUVIA [Concomitant]
     Active Substance: SITAGLIPTIN PHOSPHATE
  9. LISINOPRIL [Concomitant]
  10. METFORMIN HCL [Concomitant]
  11. MULTI VITAMIN [Concomitant]
  12. ONDANSETRON HCL [Concomitant]
  13. TAMSULOSIN HYDROCHLORIDE [Concomitant]
     Active Substance: TAMSULOSIN HYDROCHLORIDE
  14. TYLENOL [Concomitant]
  15. VITAMIN D3 [Concomitant]
     Active Substance: CHOLECALCIFEROL
  16. WARFARIN SODIUM [Concomitant]
  17. ZINC [Concomitant]
     Active Substance: ZINC

REACTIONS (1)
  - Nausea [None]
